FAERS Safety Report 7675606-7 (Version None)
Quarter: 2011Q3

REPORT INFORMATION
  Report Type: 
  Country: None (occurrence: None)
  Receive Date: 20110810
  Receipt Date: 20110729
  Transmission Date: 20111222
  Serious: Yes (Other)
  Sender: FDA-Public Use
  Company Number: US-PFIZER INC-2011173638

PATIENT
  Sex: Female
  Weight: 68.03 kg

DRUGS (3)
  1. PRISTIQ [Suspect]
     Indication: ANXIETY
  2. LAMICTAL [Concomitant]
     Indication: DEPRESSION
     Dosage: UNK
     Dates: start: 20100101
  3. PRISTIQ [Suspect]
     Indication: DEPRESSION
     Dosage: 100 MG, 1X/DAY
     Route: 048
     Dates: start: 20110101

REACTIONS (1)
  - CATARACT [None]
